FAERS Safety Report 17009463 (Version 3)
Quarter: 2020Q1

REPORT INFORMATION
  Report Type: Spontaneous
  Country: US (occurrence: US)
  Receive Date: 20191108
  Receipt Date: 20200128
  Transmission Date: 20200409
  Serious: Yes (Hospitalization, Other)
  Sender: FDA-Public Use
  Company Number: US-JAZZ-JPI-P-033881

PATIENT
  Sex: Male

DRUGS (7)
  1. DOXEPIN HCL [Suspect]
     Active Substance: DOXEPIN HYDROCHLORIDE
     Indication: SLEEP DISORDER
     Dosage: UNK
  2. XYREM [Suspect]
     Active Substance: SODIUM OXYBATE
     Dosage: 1 G, BID
     Route: 048
  3. XYREM [Suspect]
     Active Substance: SODIUM OXYBATE
     Dosage: 0.75 G, BID
     Route: 048
  4. XYREM [Suspect]
     Active Substance: SODIUM OXYBATE
     Indication: HYPERSOMNIA
     Dosage: 3 G, BID
     Route: 048
     Dates: start: 200402
  5. XYREM [Suspect]
     Active Substance: SODIUM OXYBATE
     Indication: SLEEP DISORDER
     Dosage: DOSE ADJUSTMENTS
     Route: 048
  6. XYREM [Suspect]
     Active Substance: SODIUM OXYBATE
     Indication: INSOMNIA
     Dosage: 3.0 G, BID
     Route: 048
     Dates: start: 200705
  7. XYREM [Suspect]
     Active Substance: SODIUM OXYBATE
     Dosage: 3.25 G, BID
     Route: 048

REACTIONS (9)
  - Weight increased [Not Recovered/Not Resolved]
  - Post procedural complication [Unknown]
  - Fatigue [Not Recovered/Not Resolved]
  - Spinal fusion surgery [Unknown]
  - Off label use [Unknown]
  - Removal of internal fixation [Unknown]
  - Incorrect dose administered [Unknown]
  - Staphylococcal infection [Unknown]
  - Intervertebral disc protrusion [Recovered/Resolved]

NARRATIVE: CASE EVENT DATE: 2011
